FAERS Safety Report 5932828-0 (Version None)
Quarter: 2008Q4

REPORT INFORMATION
  Report Type: 
  Country: None (occurrence: None)
  Receive Date: 20081027
  Receipt Date: 20081027
  Transmission Date: 20090506
  Serious: Yes (Hospitalization)
  Sender: FDA-Public Use
  Company Number: None

PATIENT
  Sex: Female
  Weight: 60.9 kg

DRUGS (2)
  1. ETOPOSIDE [Suspect]
     Dosage: 1467 MG
  2. CISPLATIN [Suspect]
     Dosage: 390 MG

REACTIONS (5)
  - DEHYDRATION [None]
  - HYPOKALAEMIA [None]
  - HYPOPHAGIA [None]
  - ODYNOPHAGIA [None]
  - OESOPHAGITIS [None]
